FAERS Safety Report 8142344-6 (Version None)
Quarter: 2012Q1

REPORT INFORMATION
  Report Type: 
  Country: None (occurrence: None)
  Receive Date: 20120216
  Receipt Date: 20120206
  Transmission Date: 20120608
  Serious: Yes (Other)
  Sender: FDA-Public Use
  Company Number: PHHY2012NL010765

PATIENT
  Age: 45 Year
  Sex: Male

DRUGS (4)
  1. AZATHIOPRINE [Suspect]
     Indication: PEMPHIGUS
     Dosage: 3 MG/KG, UNK
  2. RITUXIMAB [Suspect]
     Indication: PEMPHIGUS
     Dosage: IN HAEMATOLOGICAL DOSES
  3. PREDNISOLONE [Suspect]
     Indication: PEMPHIGUS
     Dosage: 0.5 MG/KG, UNK
  4. MYCOPHENOLIC ACID [Suspect]
     Indication: PEMPHIGUS
     Dosage: 1440 MG, UNK

REACTIONS (9)
  - DYSPNOEA [None]
  - LIVER FUNCTION TEST ABNORMAL [None]
  - SCOTOMA [None]
  - SKIN STRIAE [None]
  - MUSCULAR WEAKNESS [None]
  - NAUSEA [None]
  - DRUG RESISTANCE [None]
  - MYALGIA [None]
  - SKIN LESION [None]
